FAERS Safety Report 5505635-0 (Version None)
Quarter: 2007Q4

REPORT INFORMATION
  Report Type: 
  Country: None (occurrence: None)
  Receive Date: 20071102
  Receipt Date: 20071023
  Transmission Date: 20080405
  Serious: Yes (Other)
  Sender: FDA-Public Use
  Company Number: US-PFIZER INC-2007065619

PATIENT
  Sex: Male
  Weight: 86.2 kg

DRUGS (8)
  1. CHANTIX [Suspect]
     Indication: TOBACCO ABUSE
  2. CHANTIX [Suspect]
     Indication: CHRONIC OBSTRUCTIVE PULMONARY DISEASE
  3. TRAZODONE HCL [Concomitant]
  4. DEPAKOTE [Concomitant]
  5. PROTONIX [Concomitant]
  6. TRICOR [Concomitant]
  7. ZETIA [Concomitant]
  8. ZYPREXA [Concomitant]

REACTIONS (2)
  - GASTROOESOPHAGEAL REFLUX DISEASE [None]
  - TONGUE DISORDER [None]
